APPROVED DRUG PRODUCT: ACCOLATE
Active Ingredient: ZAFIRLUKAST
Strength: 20MG
Dosage Form/Route: TABLET;ORAL
Application: N020547 | Product #001 | TE Code: AB
Applicant: STRIDES PHARMA INTERNATIONAL AG
Approved: Sep 26, 1996 | RLD: Yes | RS: Yes | Type: RX